FAERS Safety Report 4736697-6 (Version None)
Quarter: 2005Q3

REPORT INFORMATION
  Report Type: 
  Country: None (occurrence: None)
  Receive Date: 20050808
  Receipt Date: 20050808
  Transmission Date: 20060218
  Serious: Yes (Death, Hospitalization)
  Sender: FDA-Public Use
  Company Number: None

PATIENT
  Age: 76 Year
  Sex: Female
  Weight: 43.5453 kg

DRUGS (12)
  1. MEGACE [Suspect]
     Indication: LUNG NEOPLASM MALIGNANT
     Dosage: 20 ML PO QD
     Route: 048
     Dates: start: 20050401, end: 20050701
  2. PROVENTIL [Concomitant]
  3. TOPROL-XL [Concomitant]
  4. CARDIA XT [Concomitant]
  5. KLOR-CON [Concomitant]
  6. ATIVAN [Concomitant]
  7. PHENERGAN HCL [Concomitant]
  8. REGLAN [Concomitant]
  9. PRILOSEC [Concomitant]
  10. STOOL SOFTNER [Concomitant]
  11. MMW [Concomitant]
  12. OXYCODONE [Concomitant]

REACTIONS (3)
  - DEHYDRATION [None]
  - DYSPNOEA [None]
  - GASTROINTESTINAL HAEMORRHAGE [None]
